FAERS Safety Report 8079554-2 (Version None)
Quarter: 2012Q1

REPORT INFORMATION
  Report Type: 
  Country: None (occurrence: None)
  Receive Date: 20120128
  Receipt Date: 20110826
  Transmission Date: 20120608
  Serious: No
  Sender: FDA-Public Use
  Company Number: US-ABBOTT-11P-163-0850235-00

PATIENT
  Sex: Female
  Weight: 46.308 kg

DRUGS (4)
  1. HUMIRA [Suspect]
     Route: 058
     Dates: start: 20110601, end: 20110701
  2. HUMIRA [Suspect]
     Indication: CROHN'S DISEASE
     Route: 058
     Dates: start: 20110501, end: 20110501
  3. IMURAN [Concomitant]
     Indication: CROHN'S DISEASE
  4. HUMIRA [Suspect]
     Route: 058
     Dates: start: 20110501, end: 20110501

REACTIONS (2)
  - LUPUS-LIKE SYNDROME [None]
  - ARTHRALGIA [None]
